FAERS Safety Report 4952797-X (Version None)
Quarter: 2006Q1

REPORT INFORMATION
  Report Type: 
  Country: None (occurrence: None)
  Receive Date: 20060320
  Receipt Date: 20060308
  Transmission Date: 20060701
  Serious: Yes (Other)
  Sender: FDA-Public Use
  Company Number: 2006033685

PATIENT
  Age: 90 Year
  Sex: Male
  Weight: 79.8331 kg

DRUGS (7)
  1. LIPITOR [Suspect]
     Indication: CEREBROVASCULAR ACCIDENT
     Dosage: 40 MG DAILY
     Dates: end: 20060301
  2. LIPITOR [Suspect]
     Indication: MYOCARDIAL INFARCTION
     Dosage: 40 MG DAILY
     Dates: end: 20060301
  3. WARFARIN SODIUM [Suspect]
     Indication: CORONARY ARTERY OCCLUSION
  4. FLOMAX [Concomitant]
  5. LASIX [Concomitant]
  6. TOPROL-XL [Concomitant]
  7. CAPTOPRIL [Concomitant]

REACTIONS (3)
  - EPISTAXIS [None]
  - GYNAECOMASTIA [None]
  - HEART RATE DECREASED [None]
